FAERS Safety Report 7366062-7 (Version None)
Quarter: 2011Q1

REPORT INFORMATION
  Report Type: 
  Country: None (occurrence: None)
  Receive Date: 20110317
  Receipt Date: 20110317
  Transmission Date: 20110831
  Serious: Yes (Hospitalization)
  Sender: FDA-Public Use
  Company Number: None

PATIENT
  Sex: Female
  Weight: 79 kg

DRUGS (4)
  1. VINCRISTINE SULFATE [Suspect]
     Dosage: 4 MG
  2. MERCAPTOPURINE [Suspect]
     Dosage: 7562.5 MG
  3. DEXAMETHASONE [Suspect]
     Dosage: 100 MG
  4. METHOTREXATE [Suspect]
     Dosage: 210 MG

REACTIONS (4)
  - SKIN LESION [None]
  - JAUNDICE [None]
  - BLOOD BILIRUBIN INCREASED [None]
  - HERPES SIMPLEX [None]
